FAERS Safety Report 7422799-2 (Version None)
Quarter: 2011Q2

REPORT INFORMATION
  Report Type: 
  Country: None (occurrence: None)
  Receive Date: 20110414
  Receipt Date: 20110414
  Transmission Date: 20111010
  Serious: Yes (Hospitalization)
  Sender: FDA-Public Use
  Company Number: None

PATIENT
  Age: 76 Year
  Sex: Male
  Weight: 96.7 kg

DRUGS (1)
  1. SULFAMETHOXAZOLE TRIMETHOPRIM [Suspect]
     Dosage: 800/160 MG BID PO
     Route: 048
     Dates: start: 20110106, end: 20110124

REACTIONS (2)
  - RENAL FAILURE ACUTE [None]
  - THROMBOCYTOPENIA [None]
